FAERS Safety Report 4715435-7 (Version None)
Quarter: 2005Q3

REPORT INFORMATION
  Report Type: 
  Country: None (occurrence: None)
  Receive Date: 20050713
  Receipt Date: 20050630
  Transmission Date: 20060218
  Serious: Yes (Hospitalization, Disabling, Other)
  Sender: FDA-Public Use
  Company Number: 2005072011

PATIENT
  Age: 54 Year
  Sex: Female
  Weight: 54.4316 kg

DRUGS (6)
  1. GEODON [Suspect]
     Indication: BIPOLAR DISORDER
     Dosage: ORAL
     Route: 048
     Dates: start: 20011021, end: 20011224
  2. GEODON [Suspect]
     Indication: HALLUCINATION
     Dosage: ORAL
     Route: 048
     Dates: start: 20011021, end: 20011224
  3. ZYPREXA [Suspect]
     Indication: ILL-DEFINED DISORDER
  4. CELEXA [Concomitant]
  5. DEPAKOTE [Concomitant]
  6. COGENTIN [Concomitant]

REACTIONS (28)
  - ACIDOSIS [None]
  - ACUTE RESPIRATORY FAILURE [None]
  - ADVERSE EVENT [None]
  - ANOXIC ENCEPHALOPATHY [None]
  - ANXIETY [None]
  - ARRHYTHMIA [None]
  - BRAIN DAMAGE [None]
  - CARDIAC ARREST [None]
  - COGNITIVE DISORDER [None]
  - COMA [None]
  - DISORIENTATION [None]
  - DYSPHAGIA [None]
  - ELECTROMECHANICAL DISSOCIATION [None]
  - FLAT AFFECT [None]
  - HYPOXIA [None]
  - INSOMNIA [None]
  - INTUBATION COMPLICATION [None]
  - LONG QT SYNDROME [None]
  - LOSS OF CONSCIOUSNESS [None]
  - NIGHTMARE [None]
  - PNEUMONIA [None]
  - RESPIRATORY ARREST [None]
  - RHABDOMYOLYSIS [None]
  - SINUS BRADYCARDIA [None]
  - STAPHYLOCOCCAL BACTERAEMIA [None]
  - STARING [None]
  - TREATMENT NONCOMPLIANCE [None]
  - WEIGHT INCREASED [None]
